FAERS Safety Report 4702509-X (Version None)
Quarter: 2005Q2

REPORT INFORMATION
  Report Type: 
  Country: None (occurrence: None)
  Receive Date: 20050629
  Receipt Date: 20050617
  Transmission Date: 20051028
  Serious: Yes (Other)
  Sender: FDA-Public Use
  Company Number: JP-JNJFOC-20050606796

PATIENT
  Age: 71 Year
  Sex: Male

DRUGS (6)
  1. REMICADE [Suspect]
     Route: 042
  2. REMICADE [Suspect]
     Route: 042
  3. REMICADE [Suspect]
     Indication: RHEUMATOID ARTHRITIS
     Route: 042
  4. METHOTREXATE [Concomitant]
  5. CLARITHROMYCIN [Concomitant]
  6. LEVOFLOXACIN [Concomitant]

REACTIONS (1)
  - MYCOBACTERIUM AVIUM COMPLEX INFECTION [None]
